FAERS Safety Report 6402267-7 (Version None)
Quarter: 2009Q4

REPORT INFORMATION
  Report Type: 
  Country: None (occurrence: None)
  Receive Date: 20091015
  Receipt Date: 20091002
  Transmission Date: 20100525
  Serious: Yes (Disabling, Other)
  Sender: FDA-Public Use
  Company Number: PHHY2009JP42919

PATIENT
  Sex: Female

DRUGS (6)
  1. AMN107 AMN+CAP [Suspect]
     Indication: CHRONIC MYELOID LEUKAEMIA
     Dosage: 800 MG DAILY
     Route: 048
     Dates: start: 20090619, end: 20090723
  2. AMN107 AMN+CAP [Suspect]
     Dosage: 200 MG DAILY
     Route: 048
     Dates: start: 20090806, end: 20090809
  3. AMN107 AMN+CAP [Suspect]
     Dosage: 400 MG DAILY
     Route: 048
     Dates: start: 20090810, end: 20090812
  4. AMN107 AMN+CAP [Suspect]
     Dosage: 600 MG DAILY
     Route: 048
     Dates: start: 20090813, end: 20090816
  5. AMN107 AMN+CAP [Suspect]
     Dosage: 800 MG DAILY
     Route: 048
     Dates: start: 20090817, end: 20090820
  6. AMN107 AMN+CAP [Suspect]
     Dosage: 600 MG DAILY
     Route: 048
     Dates: start: 20090821

REACTIONS (3)
  - ERYTHEMA MULTIFORME [None]
  - HYPERBILIRUBINAEMIA [None]
  - PLATELET COUNT INCREASED [None]
